FAERS Safety Report 25601379 (Version 1)
Quarter: 2025Q3

REPORT INFORMATION
  Report Type: Spontaneous
  Country: US (occurrence: US)
  Receive Date: 20250724
  Receipt Date: 20250724
  Transmission Date: 20251020
  Serious: Yes (Hospitalization, Other)
  Sender: ADAPTIS PHARMA INDIA
  Company Number: US-EDENBRIDGE PHARMACEUTICALS, LLC-US-2025EDE000031

PATIENT
  Age: 67 Year
  Sex: Male

DRUGS (3)
  1. AMANTADINE [Suspect]
     Active Substance: AMANTADINE
     Indication: Parkinson^s disease
     Route: 065
  2. AMANTADINE [Suspect]
     Active Substance: AMANTADINE
     Route: 065
  3. CARBIDOPA\LEVODOPA [Concomitant]
     Active Substance: CARBIDOPA\LEVODOPA
     Indication: Parkinson^s disease
     Route: 065

REACTIONS (2)
  - Neuroleptic malignant syndrome [Recovered/Resolved]
  - Withdrawal syndrome [Unknown]
